FAERS Safety Report 24759885 (Version 2)
Quarter: 2025Q1

REPORT INFORMATION
  Report Type: Report from Study
  Country: US (occurrence: US)
  Receive Date: 20241220
  Receipt Date: 20250106
  Transmission Date: 20250409
  Serious: Yes (Other)
  Sender: ABBVIE
  Company Number: US-ABBVIE-6053651

PATIENT
  Age: 59 Year
  Sex: Female
  Weight: 63.502 kg

DRUGS (2)
  1. SKYRIZI [Suspect]
     Active Substance: RISANKIZUMAB-RZAA
     Indication: Crohn^s disease
     Route: 058
     Dates: start: 20230512
  2. IRON [Concomitant]
     Active Substance: IRON
     Indication: Anaemia

REACTIONS (6)
  - Fistula [Recovering/Resolving]
  - Unevaluable event [Recovering/Resolving]
  - Abdominal distension [Recovering/Resolving]
  - Haemorrhage [Recovering/Resolving]
  - Procedural pain [Recovering/Resolving]
  - Haemorrhoids [Recovering/Resolving]

NARRATIVE: CASE EVENT DATE: 20241201
